FAERS Safety Report 20850721 (Version 5)
Quarter: 2022Q2

REPORT INFORMATION
  Report Type: Report from Study
  Country: BE (occurrence: BE)
  Receive Date: 20220519
  Receipt Date: 20220622
  Transmission Date: 20220721
  Serious: Yes (Hospitalization)
  Sender: FDA-Public Use
  Company Number: BE-GLAXOSMITHKLINE-BE2022GSK079197

PATIENT

DRUGS (37)
  1. ATEZOLIZUMAB [Suspect]
     Active Substance: ATEZOLIZUMAB
     Indication: Ovarian epithelial cancer
     Dosage: 1200 MG, U
     Dates: start: 20211209, end: 20211209
  2. DOXORUBICIN [Suspect]
     Active Substance: DOXORUBICIN
     Indication: Ovarian epithelial cancer
     Dosage: 1200 MG, U
     Dates: start: 20211209, end: 20211209
  3. NIRAPARIB [Suspect]
     Active Substance: NIRAPARIB
     Indication: Ovarian epithelial cancer
     Dosage: 1200 MG, U
     Dates: start: 20211209, end: 20211209
  4. PLACEBO [Suspect]
     Active Substance: UNSPECIFIED INGREDIENT
     Indication: Ovarian epithelial cancer
     Dosage: 1200 MG, U
     Dates: start: 20211209, end: 20211209
  5. ATEZOLIZUMAB [Suspect]
     Active Substance: ATEZOLIZUMAB
     Dosage: 1200 MG, U
     Dates: start: 20220408, end: 20220408
  6. DOXORUBICIN [Suspect]
     Active Substance: DOXORUBICIN
     Dosage: 1200 MG, U
     Dates: start: 20220408, end: 20220408
  7. NIRAPARIB [Suspect]
     Active Substance: NIRAPARIB
     Dosage: 1200 MG, U
     Dates: start: 20220408, end: 20220408
  8. PLACEBO [Suspect]
     Active Substance: UNSPECIFIED INGREDIENT
     Dosage: 1200 MG, U
     Dates: start: 20220408, end: 20220408
  9. ATEZOLIZUMAB [Suspect]
     Active Substance: ATEZOLIZUMAB
     Indication: Ovarian epithelial cancer
     Dosage: 300 MG
     Route: 048
     Dates: start: 20220408, end: 20220413
  10. DOXORUBICIN [Suspect]
     Active Substance: DOXORUBICIN
     Indication: Ovarian epithelial cancer
     Dosage: 300 MG
     Route: 048
     Dates: start: 20220408, end: 20220413
  11. NIRAPARIB [Suspect]
     Active Substance: NIRAPARIB
     Indication: Ovarian epithelial cancer
     Dosage: 300 MG
     Route: 048
     Dates: start: 20220408, end: 20220413
  12. PLACEBO [Suspect]
     Active Substance: UNSPECIFIED INGREDIENT
     Indication: Ovarian epithelial cancer
     Dosage: 300 MG
     Route: 048
     Dates: start: 20220408, end: 20220413
  13. GEMCITABINE [Suspect]
     Active Substance: GEMCITABINE
     Indication: Ovarian epithelial cancer
     Dosage: 2000 MG, U
     Route: 042
     Dates: start: 20211209, end: 20211209
  14. GEMCITABINE [Suspect]
     Active Substance: GEMCITABINE
     Dosage: 2000 MG, U
     Route: 042
     Dates: start: 20220310, end: 20220310
  15. CARBOPLATIN [Suspect]
     Active Substance: CARBOPLATIN
     Indication: Ovarian epithelial cancer
     Dosage: 600 MG, U
     Route: 042
     Dates: start: 20211209, end: 20211209
  16. CARBOPLATIN [Suspect]
     Active Substance: CARBOPLATIN
     Dosage: 600 MG, U
     Route: 042
     Dates: start: 20220210, end: 20220210
  17. RIVOTRIL [Concomitant]
     Active Substance: CLONAZEPAM
     Indication: Sensory processing disorder
     Dosage: 8 DF (8 DROPS), U
     Route: 048
     Dates: start: 20220224
  18. LEVOTHYROXINE [Concomitant]
     Active Substance: LEVOTHYROXINE
     Indication: Hypothyroidism
     Dosage: 25 MG, U
     Route: 048
     Dates: start: 202005
  19. LINAGLIPTIN [Concomitant]
     Active Substance: LINAGLIPTIN
     Indication: Type 2 diabetes mellitus
     Dosage: 5 MG, U
     Route: 048
     Dates: start: 202205
  20. ATORVASTATIN CALCIUM\EZETIMIBE [Concomitant]
     Active Substance: ATORVASTATIN CALCIUM\EZETIMIBE
     Indication: Dyslipidaemia
     Dosage: 1 G, U
     Route: 048
     Dates: start: 20200101
  21. HYDROCHLOROTHIAZIDE\LOSARTAN POTASSIUM [Concomitant]
     Active Substance: HYDROCHLOROTHIAZIDE\LOSARTAN POTASSIUM
     Indication: Hypertension
     Dosage: 1 G, U
     Route: 048
     Dates: start: 20080101
  22. DEXPANTHENOL [Concomitant]
     Active Substance: DEXPANTHENOL
     Indication: Hiatus hernia
     Dosage: 20 MG
     Route: 048
     Dates: start: 20200917
  23. MOXONIDINE [Concomitant]
     Active Substance: MOXONIDINE
     Indication: Hypertension
     Dosage: 0.4 MG, U
     Route: 048
     Dates: start: 20080101
  24. AMLODIPINE BESYLATE [Concomitant]
     Active Substance: AMLODIPINE BESYLATE
     Indication: Hypertension
     Dosage: 10 MG, U
     Route: 048
     Dates: start: 20080101
  25. CHOLECALCIFEROL [Concomitant]
     Active Substance: CHOLECALCIFEROL
     Indication: Prophylaxis
     Dosage: 2500 ML, Z-QM
     Route: 048
     Dates: start: 20210323
  26. DEVICE [Concomitant]
     Active Substance: DEVICE
     Indication: Sleep apnoea syndrome
     Dosage: UNK, Z-ALL NIGHT
     Route: 055
     Dates: start: 20130101
  27. GLUCOPHAGE [Concomitant]
     Active Substance: METFORMIN HYDROCHLORIDE
     Indication: Type 2 diabetes mellitus
     Dosage: 850 MG, TID
     Route: 048
     Dates: start: 20100101, end: 202205
  28. GLICLAZIDE [Concomitant]
     Active Substance: GLICLAZIDE
     Indication: Type 2 diabetes mellitus
     Dosage: 60 MG, U
     Route: 048
     Dates: start: 20100101, end: 202005
  29. BECLOMETHASONE DIPROPIONATE\FORMOTEROL FUMARATE\GLYCOPYRROLATE [Concomitant]
     Active Substance: BECLOMETHASONE DIPROPIONATE\FORMOTEROL FUMARATE\GLYCOPYRROLATE
     Indication: Chronic obstructive pulmonary disease
     Dosage: 2 PUFF(S), BID
     Route: 055
  30. DEXAMETHASONE [Concomitant]
     Active Substance: DEXAMETHASONE
     Indication: Chemotherapy side effect prophylaxis
     Dosage: 10 MG
     Route: 042
     Dates: start: 20211209
  31. HUMAN RED BLOOD CELL [Concomitant]
     Active Substance: HUMAN RED BLOOD CELL
     Indication: Anaemia
     Dosage: 2 UNITS, PRN
     Route: 042
     Dates: start: 20211202, end: 20211202
  32. HUMAN RED BLOOD CELL [Concomitant]
     Active Substance: HUMAN RED BLOOD CELL
     Dosage: 2 UNITS, PRN
     Route: 042
     Dates: start: 20220120, end: 20220120
  33. HUMAN RED BLOOD CELL [Concomitant]
     Active Substance: HUMAN RED BLOOD CELL
     Dosage: 2 UNITS, PRN
     Route: 042
     Dates: start: 20220208, end: 20220208
  34. HUMAN RED BLOOD CELL [Concomitant]
     Active Substance: HUMAN RED BLOOD CELL
     Dosage: 2 UNITS, PRN
     Route: 042
     Dates: start: 20220224, end: 20220224
  35. HUMAN RED BLOOD CELL [Concomitant]
     Active Substance: HUMAN RED BLOOD CELL
     Dosage: 2 UNITS, PRN
     Route: 042
     Dates: start: 20220303, end: 20220303
  36. HUMAN RED BLOOD CELL [Concomitant]
     Active Substance: HUMAN RED BLOOD CELL
     Dosage: 2 UNITS, PRN
     Route: 042
     Dates: start: 20220317, end: 20220317
  37. HUMAN RED BLOOD CELL [Concomitant]
     Active Substance: HUMAN RED BLOOD CELL
     Dosage: 2 UNITS, PRN
     Route: 042
     Dates: start: 20220505, end: 20220505

REACTIONS (1)
  - Pneumonia [Recovered/Resolved]

NARRATIVE: CASE EVENT DATE: 20220512
